FAERS Safety Report 24874833 (Version 4)
Quarter: 2025Q2

REPORT INFORMATION
  Report Type: Report from Study
  Country: US (occurrence: US)
  Receive Date: 20250122
  Receipt Date: 20250407
  Transmission Date: 20250717
  Serious: Yes (Hospitalization)
  Sender: EXELIXIS
  Company Number: US-EXELIXIS-EXL-2024-003293

PATIENT
  Sex: Female

DRUGS (1)
  1. CABOMETYX [Suspect]
     Active Substance: CABOZANTINIB S-MALATE
     Indication: Endometrial cancer
     Dosage: 40 MG, QD
     Route: 048
     Dates: start: 202409

REACTIONS (5)
  - Hospitalisation [Unknown]
  - Thrombosis [Unknown]
  - Diarrhoea [Not Recovered/Not Resolved]
  - Abnormal faeces [Unknown]
  - Off label use [Unknown]
